FAERS Safety Report 9439270 (Version 2)
Quarter: 2013Q3

REPORT INFORMATION
  Report Type: Spontaneous
  Country: ES (occurrence: ES)
  Receive Date: 20130804
  Receipt Date: 20130806
  Transmission Date: 20140515
  Serious: Yes (Hospitalization, Disabling)
  Sender: FDA-Public Use
  Company Number: ES-ROCHE-1256750

PATIENT
  Sex: Female
  Weight: 72 kg

DRUGS (12)
  1. PERJETA [Suspect]
     Indication: PRODUCT USED FOR UNKNOWN INDICATION
     Route: 042
     Dates: start: 20130619
  2. DOCETAXEL [Suspect]
     Indication: PRODUCT USED FOR UNKNOWN INDICATION
     Route: 042
     Dates: start: 20130530
  3. DOCETAXEL [Suspect]
     Dosage: SECOND CYCLE
     Route: 042
  4. DOCETAXEL [Suspect]
     Dosage: THIRD CYCLE
     Route: 042
  5. TRASTUZUMAB [Suspect]
     Indication: BREAST CANCER METASTATIC
     Route: 042
     Dates: start: 20130530
  6. FUROSEMIDE [Concomitant]
     Route: 065
     Dates: end: 201202
  7. FLUVASTATIN [Concomitant]
     Route: 065
     Dates: start: 201202
  8. TIMOLOL [Concomitant]
     Dosage: 1 DROP IN EACH EYE EVERY DAY
     Route: 047
  9. NICARDIPINE [Concomitant]
     Route: 065
     Dates: start: 201202
  10. CALCIUM CARBONATE/CHOLECALCIFEROL [Concomitant]
     Dosage: 1000 CALCIUM/800 UI
     Route: 065
     Dates: start: 201202
  11. TRANKIMAZIN [Concomitant]
     Route: 065
     Dates: start: 201202
  12. OMEPRAZOLE [Concomitant]
     Route: 065
     Dates: end: 201202

REACTIONS (1)
  - Skin toxicity [Not Recovered/Not Resolved]
